FAERS Safety Report 24713117 (Version 1)
Quarter: 2024Q4

REPORT INFORMATION
  Report Type: Spontaneous
  Country: GB (occurrence: GB)
  Receive Date: 20241209
  Receipt Date: 20241209
  Transmission Date: 20250114
  Serious: Yes (Other)
  Sender: BAUSCH AND LOMB
  Company Number: GB-MHRA-MED-202411261432276810-VKCNW

PATIENT
  Age: 68 Year
  Sex: Female
  Weight: 140 kg

DRUGS (2)
  1. PLENVU [Suspect]
     Active Substance: ASCORBIC ACID\POLYETHYLENE GLYCOL 3350\POTASSIUM CHLORIDE\SODIUM ASCORBATE\SODIUM CHLORIDE\SODIUM SU
     Indication: Colonoscopy
     Dosage: UNK
     Route: 048
     Dates: start: 20241120, end: 20241120
  2. BETAHISTINE [Concomitant]
     Active Substance: BETAHISTINE
     Indication: Meniere^s disease
     Dosage: 30 MG
     Route: 065

REACTIONS (6)
  - Visual impairment [Recovered/Resolved]
  - Vomiting projectile [Recovered/Resolved]
  - Drug hypersensitivity [Unknown]
  - Malaise [Unknown]
  - Tremor [Recovered/Resolved]
  - Headache [Recovered/Resolved]

NARRATIVE: CASE EVENT DATE: 20241120
